FAERS Safety Report 5227035-3 (Version None)
Quarter: 2007Q1

REPORT INFORMATION
  Report Type: 
  Country: None (occurrence: None)
  Receive Date: 20070201
  Receipt Date: 20070201
  Transmission Date: 20070707
  Serious: Yes (Hospitalization)
  Sender: FDA-Public Use
  Company Number: None

PATIENT
  Sex: Male
  Weight: 75 kg

DRUGS (5)
  1. CYCLOPHOSPHAMIDE [Suspect]
     Dosage: 1355 MG
  2. DOXORUBICIN HYDROCHLORIDE [Suspect]
     Dosage: 90 MG
  3. PREDNISONE [Suspect]
     Dosage: 400 MG
  4. RITUXIMAB (MOAB C2B8 ANTI CD20, CHIMERIC) [Suspect]
     Dosage: 680 MG
  5. VINCRISTINE SULFATE [Suspect]
     Dosage: 2 MG

REACTIONS (6)
  - ATRIAL FIBRILLATION [None]
  - CARDIAC FAILURE CONGESTIVE [None]
  - CARDIOPULMONARY FAILURE [None]
  - PNEUMONIA [None]
  - RENAL IMPAIRMENT [None]
  - SEPSIS [None]
